FAERS Safety Report 6339114-8 (Version None)
Quarter: 2009Q3

REPORT INFORMATION
  Report Type: 
  Country: None (occurrence: None)
  Receive Date: 20090903
  Receipt Date: 20090826
  Transmission Date: 20100115
  Serious: Yes (Other)
  Sender: FDA-Public Use
  Company Number: DE-BAYER-200929978GPV

PATIENT
  Age: 59 Year
  Sex: Female

DRUGS (3)
  1. NIMOTOP TM [Suspect]
     Indication: SUBARACHNOID HAEMORRHAGE
     Dosage: IN RINGER'S SOLUTION AT A CONCENTRATION OF 10 MG/500 ML, 0.4 MG/HOUR
     Route: 037
  2. UROKINASE [Suspect]
     Indication: SUBARACHNOID HAEMORRHAGE
     Dosage: DISSOLVED IN 500 ML OF RINGER'S SOLUTION
     Route: 037
  3. RINGER'S [Concomitant]
     Indication: SUBARACHNOID HAEMORRHAGE

REACTIONS (1)
  - PARAPLEGIA [None]
